FAERS Safety Report 5757814-5 (Version None)
Quarter: 2008Q2

REPORT INFORMATION
  Report Type: 
  Country: None (occurrence: None)
  Receive Date: 20080529
  Receipt Date: 20080519
  Transmission Date: 20081010
  Serious: No
  Sender: FDA-Public Use
  Company Number: 2008-177839-NL

PATIENT
  Age: 18 Year
  Sex: Female

DRUGS (1)
  1. NUVARING [Suspect]
     Dosage: DF
     Dates: start: 20080201

REACTIONS (3)
  - PELVIC PAIN [None]
  - URETHRAL HAEMORRHAGE [None]
  - URETHRAL OBSTRUCTION [None]
